FAERS Safety Report 5916060-2 (Version None)
Quarter: 2008Q4

REPORT INFORMATION
  Report Type: 
  Country: None (occurrence: None)
  Receive Date: 20081013
  Receipt Date: 20081003
  Transmission Date: 20090506
  Serious: Yes (Hospitalization)
  Sender: FDA-Public Use
  Company Number: FR-JNJFOC-20081000989

PATIENT
  Sex: Female

DRUGS (10)
  1. MOTILIUM [Suspect]
     Indication: ABDOMINAL PAIN
     Route: 048
  2. MOTILIUM [Suspect]
     Indication: DIARRHOEA
     Route: 048
  3. LOPERAMIDE HCL [Suspect]
     Indication: ABDOMINAL PAIN
     Route: 048
  4. LOPERAMIDE HCL [Suspect]
     Indication: DIARRHOEA
     Route: 048
  5. NIFUROXAZIDE [Suspect]
     Indication: ABDOMINAL PAIN
     Route: 048
  6. NIFUROXAZIDE [Suspect]
     Indication: DIARRHOEA
     Route: 048
  7. VISCERALGINE [Suspect]
     Indication: ABDOMINAL PAIN
     Route: 048
  8. VISCERALGINE [Suspect]
     Indication: DIARRHOEA
     Route: 048
  9. LACTEOL [Suspect]
     Indication: ABDOMINAL PAIN
     Route: 048
  10. LACTEOL [Suspect]
     Indication: DIARRHOEA
     Route: 048

REACTIONS (2)
  - FACE OEDEMA [None]
  - URTICARIA [None]
